FAERS Safety Report 16686064 (Version 1)
Quarter: 2019Q3

REPORT INFORMATION
  Report Type: Spontaneous
  Country: CA (occurrence: CA)
  Receive Date: 20190809
  Receipt Date: 20190809
  Transmission Date: 20191004
  Serious: Yes (Other)
  Sender: FDA-Public Use
  Company Number: CA-CELLTRION INC.-2018CA017654

PATIENT

DRUGS (7)
  1. INFLECTRA [Suspect]
     Active Substance: INFLIXIMAB-DYYB
     Dosage: 800 MG, (EVERY 6 WEEKS)
     Route: 042
     Dates: start: 20190211
  2. INFLECTRA [Suspect]
     Active Substance: INFLIXIMAB-DYYB
     Dosage: 5 MG/KG, UNK
     Route: 042
  3. INFLECTRA [Suspect]
     Active Substance: INFLIXIMAB-DYYB
     Dosage: 800 MG, CYCLIC (EVERY 2, 6 WEEKS, THEN EVERY 8 WEEKS)
     Route: 042
     Dates: start: 20180123, end: 20180410
  4. INFLECTRA [Suspect]
     Active Substance: INFLIXIMAB-DYYB
     Dosage: 800 MG, (EVERY 6 WEEKS)
     Route: 042
     Dates: start: 20180523
  5. INFLECTRA [Suspect]
     Active Substance: INFLIXIMAB-DYYB
     Dosage: 900 MG, (EVERY 6 WEEKS)
     Route: 042
     Dates: start: 20190727
  6. INFLECTRA [Suspect]
     Active Substance: INFLIXIMAB-DYYB
     Indication: COLITIS ULCERATIVE
     Dosage: 900 MG, (EVERY 2, 6 WEEKS, THEN EVERY 8 WEEKS)
     Route: 042
     Dates: start: 20180118, end: 20180118
  7. ASACOL [Suspect]
     Active Substance: MESALAMINE
     Indication: COLITIS ULCERATIVE
     Dosage: UNK
     Route: 065
     Dates: start: 201311

REACTIONS (8)
  - Heart rate irregular [Unknown]
  - Drug ineffective [Unknown]
  - Weight decreased [Recovered/Resolved]
  - Weight increased [Unknown]
  - Product use issue [Unknown]
  - Overdose [Unknown]
  - Body temperature fluctuation [Unknown]
  - Off label use [Unknown]

NARRATIVE: CASE EVENT DATE: 201801
